FAERS Safety Report 10299572 (Version 3)
Quarter: 2015Q2

REPORT INFORMATION
  Report Type: Spontaneous
  Country: CH (occurrence: CH)
  Receive Date: 20140711
  Receipt Date: 20150527
  Transmission Date: 20150821
  Serious: Yes (Other)
  Sender: FDA-Public Use
  Company Number: CH-PFIZER INC-2014103114

PATIENT
  Age: 33 Year
  Sex: Female

DRUGS (3)
  1. SAYANA [Suspect]
     Active Substance: MEDROXYPROGESTERONE
     Dosage: 1 DF, EVERY 3 MONTHS
     Route: 058
     Dates: end: 20140422
  2. SAYANA [Suspect]
     Active Substance: MEDROXYPROGESTERONE
     Dosage: 1 DF, UNK
     Route: 058
     Dates: start: 20140211
  3. SAYANA [Suspect]
     Active Substance: MEDROXYPROGESTERONE
     Indication: CHEMICAL CONTRACEPTION
     Dosage: 1 DF, EVERY 3 MONTHS
     Route: 058
     Dates: start: 20131203

REACTIONS (3)
  - Injection site atrophy [Not Recovered/Not Resolved]
  - Injection site atrophy [Not Recovered/Not Resolved]
  - Injection site reaction [Not Recovered/Not Resolved]

NARRATIVE: CASE EVENT DATE: 201402
